FAERS Safety Report 26121974 (Version 1)
Quarter: 2025Q4

REPORT INFORMATION
  Report Type: Report from Study
  Country: GB (occurrence: GB)
  Receive Date: 20251204
  Receipt Date: 20251204
  Transmission Date: 20260118
  Serious: Yes (Other)
  Sender: AMGEN
  Company Number: GB-AMGEN-GBRSL2025235851

PATIENT
  Age: 84 Year
  Sex: Female

DRUGS (1)
  1. USTEKINUMAB [Suspect]
     Active Substance: USTEKINUMAB
     Indication: Psoriasis
     Dosage: 45 MILLIGRAM EVERY 45 WEEKS
     Route: 058

REACTIONS (4)
  - Loss of consciousness [Unknown]
  - Chest pain [Unknown]
  - Dyspepsia [Unknown]
  - Back pain [Unknown]

NARRATIVE: CASE EVENT DATE: 20251101
